FAERS Safety Report 14369864 (Version 2)
Quarter: 2018Q1

REPORT INFORMATION
  Report Type: Spontaneous
  Country: PL (occurrence: PL)
  Receive Date: 20180110
  Receipt Date: 20180112
  Transmission Date: 20180509
  Serious: No
  Sender: FDA-Public Use
  Company Number: PL-009507513-1801POL003025

PATIENT
  Age: 76 Year
  Sex: Female

DRUGS (1)
  1. SINGULAIR [Suspect]
     Active Substance: MONTELUKAST SODIUM
     Indication: ALLERGIC COUGH
     Dosage: 10 MG, 1 TIME A DAY
     Route: 048
     Dates: start: 2008

REACTIONS (4)
  - Respiratory disorder [Unknown]
  - Asthenia [Unknown]
  - Rash generalised [Recovering/Resolving]
  - Erythema nodosum [Unknown]

NARRATIVE: CASE EVENT DATE: 201711
